FAERS Safety Report 21039235 (Version 1)
Quarter: 2022Q3

REPORT INFORMATION
  Report Type: Spontaneous
  Country: JP (occurrence: JP)
  Receive Date: 20220704
  Receipt Date: 20220704
  Transmission Date: 20221026
  Serious: Yes (Hospitalization, Other)
  Sender: FDA-Public Use
  Company Number: JP-CPL-002955

PATIENT
  Age: 67 Year
  Sex: Female
  Weight: 52.5 kg

DRUGS (1)
  1. VENLAFAXINE [Suspect]
     Active Substance: VENLAFAXINE HYDROCHLORIDE
     Indication: Depressed mood
     Dosage: INCREASED TO 150?MG/DAY FROM 37.5MG AND 75MG, REDUCED TO 75MG AND 37.5MG

REACTIONS (2)
  - Clonus [Unknown]
  - Altered state of consciousness [Unknown]
